FAERS Safety Report 4418017-X (Version None)
Quarter: 2004Q3

REPORT INFORMATION
  Report Type: 
  Country: None (occurrence: None)
  Receive Date: 20040803
  Receipt Date: 20040721
  Transmission Date: 20050211
  Serious: Yes (Hospitalization)
  Sender: FDA-Public Use
  Company Number: 185144

PATIENT
  Sex: Female
  Weight: 58.9676 kg

DRUGS (2)
  1. AVONEX [Suspect]
     Indication: MULTIPLE SCLEROSIS
     Dosage: 30 MCG QW IM
     Route: 030
     Dates: start: 20001103, end: 20010101
  2. AVONEX [Suspect]
     Indication: MULTIPLE SCLEROSIS
     Dosage: 30 MCG QW IM
     Route: 030
     Dates: start: 20031001

REACTIONS (7)
  - COGNITIVE DISORDER [None]
  - CONDITION AGGRAVATED [None]
  - DYSPHAGIA [None]
  - INJECTION SITE REACTION [None]
  - INSOMNIA [None]
  - MULTIPLE SCLEROSIS [None]
  - SPEECH DISORDER [None]
